FAERS Safety Report 7275534-5 (Version None)
Quarter: 2011Q1

REPORT INFORMATION
  Report Type: 
  Country: None (occurrence: None)
  Receive Date: 20110204
  Receipt Date: 20110128
  Transmission Date: 20110831
  Serious: Yes (Life-Threatening, Hospitalization)
  Sender: FDA-Public Use
  Company Number: PL-B.I. PHARMACEUTICALS,INC./RIDGEFIELD-2011-DE-00761DE

PATIENT
  Sex: Female
  Weight: 109 kg

DRUGS (14)
  1. GLIQUIDONE [Concomitant]
     Dosage: 2 MG
     Route: 048
  2. CHLORTHALIDONE [Concomitant]
     Dosage: 50 MG
     Route: 048
  3. AMIODARONE HCL [Concomitant]
     Dosage: 200 MG
     Route: 048
  4. LOSARTAN POTASSIUM [Concomitant]
     Dosage: 50 MG
     Route: 048
  5. DABIGATRAN [Suspect]
     Indication: ATRIAL FIBRILLATION
  6. ATORVASTATINUM [Concomitant]
     Dosage: 20 MG
     Route: 048
  7. PIRACETAM [Concomitant]
     Dosage: 2400 NR
     Route: 048
  8. LEVOTHYROXINE [Concomitant]
     Dosage: 150 MCG
     Route: 048
  9. INSULINE [Concomitant]
     Dosage: 70 U
     Route: 058
  10. RAMIPRIL [Concomitant]
     Dosage: 10 MG
     Route: 048
  11. LACIDIPINE [Concomitant]
     Dosage: 4 MG
     Route: 048
  12. POTASSIUM [Concomitant]
     Dosage: 315 MG
     Route: 048
  13. DABIGATRAN [Suspect]
     Indication: CEREBROVASCULAR ACCIDENT PROPHYLAXIS
     Route: 048
     Dates: start: 20090224, end: 20101206
  14. BISOPROLOL [Concomitant]
     Dosage: 5 MG
     Route: 048

REACTIONS (1)
  - HOSPITALISATION [None]
